FAERS Safety Report 18877804 (Version 1)
Quarter: 2021Q1

REPORT INFORMATION
  Report Type: Spontaneous
  Country: HU (occurrence: HU)
  Receive Date: 20210211
  Receipt Date: 20210211
  Transmission Date: 20210420
  Serious: Yes (Death)
  Sender: FDA-Public Use
  Company Number: NVSC2021HU031191

PATIENT
  Age: 69 Year
  Sex: Male

DRUGS (2)
  1. TAFINLAR [Suspect]
     Active Substance: DABRAFENIB MESYLATE
     Indication: MALIGNANT MELANOMA
     Dosage: 150 MG, BID (2X)
     Route: 065
     Dates: start: 20210115, end: 20210117
  2. MEKINIST [Suspect]
     Active Substance: TRAMETINIB DIMETHYL SULFOXIDE
     Indication: MALIGNANT MELANOMA
     Dosage: 2 MG, QD (1X)
     Route: 065
     Dates: start: 20210115, end: 20210117

REACTIONS (5)
  - Death [Fatal]
  - Malaise [Unknown]
  - Asthenia [Unknown]
  - Pyrexia [Unknown]
  - Suspected COVID-19 [Unknown]

NARRATIVE: CASE EVENT DATE: 202101
